FAERS Safety Report 5273134-X (Version None)
Quarter: 2007Q1

REPORT INFORMATION
  Report Type: 
  Country: None (occurrence: None)
  Receive Date: 20070322
  Receipt Date: 20070316
  Transmission Date: 20070707
  Serious: Yes (Death, Life-Threatening, Hospitalization, Other)
  Sender: FDA-Public Use
  Company Number: JP-PFIZER INC-2007018070

PATIENT
  Sex: Female
  Weight: 50 kg

DRUGS (3)
  1. SOLU-MEDROL [Suspect]
     Indication: ASTHMA
     Route: 042
     Dates: start: 20060620, end: 20060722
  2. CLOPIDOGREL BISULFATE [Suspect]
  3. PERDIPINE [Concomitant]
     Route: 042

REACTIONS (6)
  - CARDIAC ARREST [None]
  - CARDIAC FAILURE [None]
  - CEREBRAL INFARCTION [None]
  - RESPIRATORY ARREST [None]
  - STAPHYLOCOCCAL SEPSIS [None]
  - THROMBOTIC THROMBOCYTOPENIC PURPURA [None]
